APPROVED DRUG PRODUCT: LIDOCAINE
Active Ingredient: LIDOCAINE
Strength: 5%
Dosage Form/Route: OINTMENT;TOPICAL
Application: A205318 | Product #001
Applicant: ENCUBE ETHICALS PRIVATE LTD
Approved: Feb 1, 2016 | RLD: No | RS: No | Type: DISCN